FAERS Safety Report 10589789 (Version 1)
Quarter: 2014Q4

REPORT INFORMATION
  Report Type: Spontaneous
  Country: US (occurrence: None)
  Receive Date: 20141117
  Receipt Date: 20141117
  Transmission Date: 20150529
  Serious: Yes (Hospitalization)
  Sender: FDA-Public Use
  Company Number: None

PATIENT
  Age: 61 Year
  Sex: Female
  Weight: 60.1 kg

DRUGS (1)
  1. ERBITUX [Suspect]
     Active Substance: CETUXIMAB

REACTIONS (5)
  - Haemoptysis [None]
  - Dyspnoea [None]
  - Vascular pseudoaneurysm [None]
  - Ulcer [None]
  - Arterial haemorrhage [None]

NARRATIVE: CASE EVENT DATE: 20140914
